FAERS Safety Report 20544335 (Version 5)
Quarter: 2022Q3

REPORT INFORMATION
  Report Type: Spontaneous
  Country: SE (occurrence: SE)
  Receive Date: 20220303
  Receipt Date: 20220729
  Transmission Date: 20221027
  Serious: Yes (Hospitalization, Other)
  Sender: FDA-Public Use
  Company Number: SE-HORIZON THERAPEUTICS-HZN-2022-001566

PATIENT

DRUGS (13)
  1. PROCYSBI [Suspect]
     Active Substance: CYSTEAMINE BITARTRATE
     Indication: Cystinosis
     Dosage: 1050 MG, QD (75 MILLIGRAM, CAPSULE, HARD)
     Route: 065
     Dates: start: 20220118
  2. PROCYSBI [Suspect]
     Active Substance: CYSTEAMINE BITARTRATE
     Dosage: 600 MG, QD (75 MILLIGRAM, CAPSULE, HARD)
     Route: 065
     Dates: start: 202202
  3. PROCYSBI [Suspect]
     Active Substance: CYSTEAMINE BITARTRATE
     Dosage: 1050 MG, QD (75 MILLIGRAM, CAPSULE, HARD)
     Route: 065
     Dates: start: 2022
  4. PROCYSBI [Suspect]
     Active Substance: CYSTEAMINE BITARTRATE
     Dosage: 525 MG, BID, (75 MG X 7 CAPSULES)
     Route: 065
     Dates: start: 20220119
  5. SODIUM BICARBONATE [Concomitant]
     Active Substance: SODIUM BICARBONATE
     Indication: Cystinosis
     Dosage: 6 G, QD
     Route: 065
  6. ALFACALCIDOL [Concomitant]
     Active Substance: ALFACALCIDOL
     Indication: Cystinosis
     Dosage: 1-2 CAPSULES
     Route: 065
  7. ALFACALCIDOL [Concomitant]
     Active Substance: ALFACALCIDOL
     Dosage: 1 UG, QD
     Route: 065
  8. NORDITROPIN [Concomitant]
     Active Substance: SOMATROPIN
     Indication: Cystinosis
     Dosage: 0.7 MG, ONCE DAILY
     Route: 065
  9. CYSTADROPS [Concomitant]
     Active Substance: CYSTEAMINE HYDROCHLORIDE
     Indication: Cystinosis
     Dosage: (EYE DROPS) FOUR TIMES DAILY
     Route: 047
  10. CALCIUM CARBONATE [Concomitant]
     Active Substance: CALCIUM CARBONATE
     Indication: Product used for unknown indication
     Dosage: 750 MG, QD
     Route: 065
  11. NIFEREX [FERROUS GLYCINE SULFATE] [Concomitant]
     Indication: Product used for unknown indication
     Dosage: 100 MG, QD
     Route: 065
  12. BENFEROL [Concomitant]
     Indication: Product used for unknown indication
     Dosage: 800 IE, ONCE DAILY
     Route: 065
  13. ERYTHROPOIETIN [Concomitant]
     Active Substance: ERYTHROPOIETIN
     Indication: Product used for unknown indication
     Dosage: 2000 IE ON MONDAYS AND THURSDAYS
     Route: 065

REACTIONS (5)
  - Blood creatinine increased [Recovering/Resolving]
  - Renal impairment [Not Recovered/Not Resolved]
  - Dehydration [Recovered/Resolved]
  - Vomiting [Recovered/Resolved]
  - Product use complaint [Not Recovered/Not Resolved]

NARRATIVE: CASE EVENT DATE: 20220201
